FAERS Safety Report 24291627 (Version 1)
Quarter: 2024Q3

REPORT INFORMATION
  Report Type: Spontaneous
  Country: US (occurrence: None)
  Receive Date: 20240906
  Receipt Date: 20240906
  Transmission Date: 20241016
  Serious: No
  Sender: DOMPE FARMACEUTICI
  Company Number: US-FARMAPROD-202310-2940

PATIENT
  Age: 77 Year
  Sex: Male

DRUGS (19)
  1. OXERVATE [Suspect]
     Active Substance: CENEGERMIN-BKBJ
     Indication: Neurotrophic keratopathy
     Route: 047
     Dates: start: 20230929, end: 20231123
  2. OXERVATE [Suspect]
     Active Substance: CENEGERMIN-BKBJ
     Indication: Hypoaesthesia eye
     Route: 047
     Dates: start: 20240409
  3. OXERVATE [Suspect]
     Active Substance: CENEGERMIN-BKBJ
  4. RHOPRESSA [Concomitant]
     Active Substance: NETARSUDIL MESYLATE
  5. OMEPRAZOLE [Concomitant]
     Active Substance: OMEPRAZOLE
     Dosage: DELAYED RELEASE.
  6. ALOGLIPTIN [Concomitant]
     Active Substance: ALOGLIPTIN
  7. FISH OIL\OMEGA-3 FATTY ACIDS [Concomitant]
     Active Substance: FISH OIL\OMEGA-3 FATTY ACIDS
  8. PROBIOTICS NOS [Concomitant]
     Active Substance: PROBIOTICS NOS
  9. VITAMIN B12 [Concomitant]
     Active Substance: CYANOCOBALAMIN
  10. ZINC [Concomitant]
     Active Substance: ZINC
  11. VITAMIN D3 [Concomitant]
     Active Substance: CHOLECALCIFEROL
  12. VITAMIN C [Concomitant]
     Active Substance: ASCORBIC ACID
  13. IRON [Concomitant]
     Active Substance: IRON
     Dosage: 325(65) MG
  14. MAGNESIUM [Concomitant]
     Active Substance: MAGNESIUM
  15. CALCIUM [Concomitant]
     Active Substance: CALCIUM
     Dosage: 500(1250)
  16. ASPIRIN [Concomitant]
     Active Substance: ASPIRIN
  17. REFRESH CELLUVISC [Concomitant]
     Active Substance: CARBOXYMETHYLCELLULOSE SODIUM
     Dosage: EYE DROPS, GEL
  18. METFORMIN HYDROCHLORIDE [Concomitant]
     Active Substance: METFORMIN HYDROCHLORIDE
  19. HERBALS [Concomitant]
     Active Substance: HERBALS
     Dosage: GUMMY

REACTIONS (13)
  - Eye pain [Not Recovered/Not Resolved]
  - Headache [Not Recovered/Not Resolved]
  - Eye swelling [Not Recovered/Not Resolved]
  - Vision blurred [Not Recovered/Not Resolved]
  - Eyelid margin crusting [Not Recovered/Not Resolved]
  - Photophobia [Not Recovered/Not Resolved]
  - Device use issue [Unknown]
  - Accidental overdose [Unknown]
  - Drug ineffective [Unknown]
  - Sinusitis [Recovering/Resolving]
  - Periorbital pain [Unknown]
  - Ocular hyperaemia [Unknown]
  - Lacrimation increased [Unknown]

NARRATIVE: CASE EVENT DATE: 20231001
